FAERS Safety Report 9242529 (Version 1)
Quarter: 2013Q2

REPORT INFORMATION
  Report Type: Spontaneous
  Country: US (occurrence: US)
  Receive Date: 20130419
  Receipt Date: 20130419
  Transmission Date: 20140414
  Serious: Yes (Other)
  Sender: FDA-Public Use
  Company Number: US-FRI-1000044292

PATIENT
  Age: 21 Year
  Sex: Male
  Weight: 77.1 kg

DRUGS (12)
  1. CELEXA [Suspect]
     Indication: DEPRESSION
  2. EFEXOR [Suspect]
     Indication: DEPRESSION
  3. ZOLOFT [Suspect]
     Indication: DEPRESSION
     Dosage: 300 MG
     Route: 048
  4. WELLBUTRIN [Suspect]
     Indication: DEPRESSION
  5. GEODON [Suspect]
  6. UNSPECIFIED MEDICATION [Suspect]
  7. KLONOPIN [Concomitant]
  8. PROZAC [Concomitant]
     Indication: DEPRESSION
  9. CYMBALTA [Concomitant]
     Indication: DEPRESSION
  10. PAXIL [Concomitant]
     Indication: DEPRESSION
  11. ZYPREXA [Concomitant]
  12. ABILIFY [Concomitant]

REACTIONS (6)
  - Platelet count increased [Unknown]
  - Platelet count decreased [Unknown]
  - Unevaluable event [Recovered/Resolved]
  - Movement disorder [Recovered/Resolved]
  - Akinesia [Recovered/Resolved]
  - Drug ineffective [Unknown]
